FAERS Safety Report 8161455-2 (Version None)
Quarter: 2012Q1

REPORT INFORMATION
  Report Type: 
  Country: None (occurrence: None)
  Receive Date: 20120222
  Receipt Date: 20120222
  Transmission Date: 20120608
  Serious: Yes (Other)
  Sender: FDA-Public Use
  Company Number: None

PATIENT
  Age: 40 Year
  Sex: Female
  Weight: 62.5964 kg

DRUGS (1)
  1. WELLBUTRIN XL [Suspect]

REACTIONS (3)
  - ANXIETY [None]
  - CRYING [None]
  - INSOMNIA [None]
